FAERS Safety Report 18060401 (Version 1)
Quarter: 2020Q3

REPORT INFORMATION
  Report Type: Spontaneous
  Country: US (occurrence: US)
  Receive Date: 20200723
  Receipt Date: 20200723
  Transmission Date: 20201103
  Serious: Yes (Hospitalization, Disabling)
  Sender: FDA-Public Use
  Company Number: None

PATIENT
  Age: 22 Year
  Sex: Male
  Weight: 77.85 kg

DRUGS (2)
  1. TREMFYA [Concomitant]
     Active Substance: GUSELKUMAB
  2. TALTZ [Suspect]
     Active Substance: IXEKIZUMAB
     Indication: GUTTATE PSORIASIS
     Dosage: ?          QUANTITY:1 INJECTION(S);OTHER FREQUENCY:1X A MONTH;OTHER ROUTE:SUBCUTANEOUS INJECTION?
     Dates: start: 20190619, end: 20200110

REACTIONS (8)
  - Colitis ulcerative [None]
  - Frequent bowel movements [None]
  - Anaemia [None]
  - Diarrhoea haemorrhagic [None]
  - Secretion discharge [None]
  - Fatigue [None]
  - Constipation [None]
  - Anal incontinence [None]

NARRATIVE: CASE EVENT DATE: 20200109
